FAERS Safety Report 13575182 (Version 1)
Quarter: 2017Q2

REPORT INFORMATION
  Report Type: Spontaneous
  Country: US (occurrence: US)
  Receive Date: 20170523
  Receipt Date: 20170523
  Transmission Date: 20170830
  Serious: Yes (Death)
  Sender: FDA-Public Use
  Company Number: None

PATIENT
  Age: 48 Year
  Sex: Female

DRUGS (2)
  1. ZOLOENDRONIC INJ [Concomitant]
  2. BOTOX [Suspect]
     Active Substance: ONABOTULINUMTOXINA
     Indication: MIGRAINE
     Dosage: BOTOX 200UNITS Q3 MONTHS IM
     Route: 030
     Dates: start: 20160809, end: 20161103

REACTIONS (1)
  - Death [None]

NARRATIVE: CASE EVENT DATE: 20170522
